FAERS Safety Report 7308669-9 (Version None)
Quarter: 2011Q1

REPORT INFORMATION
  Report Type: 
  Country: None (occurrence: None)
  Receive Date: 20110223
  Receipt Date: 20110209
  Transmission Date: 20110831
  Serious: Yes (Other)
  Sender: FDA-Public Use
  Company Number: PHFR2010GB05686

PATIENT
  Sex: Male

DRUGS (1)
  1. CLOZARIL [Suspect]
     Indication: SCHIZOPHRENIA
     Dosage: 150MG MANE AND 250MG NOCTE
     Route: 048
     Dates: start: 20090528, end: 20110207

REACTIONS (6)
  - THROAT CANCER [None]
  - DYSPNOEA [None]
  - TACHYCARDIA [None]
  - HEART RATE INCREASED [None]
  - LUNG NEOPLASM MALIGNANT [None]
  - HYPOTENSION [None]
